FAERS Safety Report 18156397 (Version 16)
Quarter: 2024Q4

REPORT INFORMATION
  Report Type: Spontaneous
  Country: US (occurrence: US)
  Receive Date: 20200817
  Receipt Date: 20241218
  Transmission Date: 20250115
  Serious: No
  Sender: PFIZER
  Company Number: US-PFIZER INC-2020313312

PATIENT
  Age: 78 Year
  Sex: Male
  Weight: 99.773 kg

DRUGS (4)
  1. BOSULIF [Suspect]
     Active Substance: BOSUTINIB MONOHYDRATE
     Indication: Chronic myeloid leukaemia
     Dosage: 100 MG, DAILY (TAKE 1 TAB DAILY MONDAY-FRIDAY)
     Route: 048
  2. BOSULIF [Suspect]
     Active Substance: BOSUTINIB MONOHYDRATE
     Dosage: 100 MG, (3 DAYS PER WEEK ON MONDAY, WEDNESDAY AND FRIDAY)
     Route: 048
  3. BOSULIF [Suspect]
     Active Substance: BOSUTINIB MONOHYDRATE
     Dosage: 100 MG, (3 DAYS A WEEK (MONDAY, WEDNESDAY, FRIDAY)
     Dates: start: 20200330
  4. BOSULIF [Suspect]
     Active Substance: BOSUTINIB MONOHYDRATE
     Dosage: 100 MG, (1 TABLET MONDAY, WEDNESDAY, FRIDAY)
     Dates: start: 20221229

REACTIONS (1)
  - Off label use [Unknown]
